FAERS Safety Report 7022222-6 (Version None)
Quarter: 2010Q3

REPORT INFORMATION
  Report Type: 
  Country: None (occurrence: None)
  Receive Date: 20100930
  Receipt Date: 20100920
  Transmission Date: 20110219
  Serious: Yes (Other)
  Sender: FDA-Public Use
  Company Number: IT-SANOFI-AVENTIS-2010SA053347

PATIENT
  Age: 63 Year
  Sex: Male

DRUGS (7)
  1. PLAVIX [Suspect]
     Route: 048
     Dates: start: 20100805, end: 20100812
  2. CARDIOASPIRIN [Suspect]
     Route: 048
     Dates: start: 20100805, end: 20100813
  3. TRIATEC [Concomitant]
     Route: 048
     Dates: start: 20100805, end: 20100816
  4. LASIX [Concomitant]
     Route: 048
     Dates: start: 20100808, end: 20100810
  5. SEACOR [Concomitant]
     Indication: PRODUCT USED FOR UNKNOWN INDICATION
     Route: 048
     Dates: start: 20100805, end: 20100810
  6. KLACID [Concomitant]
     Indication: PRODUCT USED FOR UNKNOWN INDICATION
     Route: 048
     Dates: start: 20100807, end: 20100810
  7. ALLOPURINOL [Concomitant]
     Indication: RENAL FAILURE
     Route: 048
     Dates: start: 20100809

REACTIONS (2)
  - DERMATITIS EXFOLIATIVE [None]
  - PURPURA [None]
